FAERS Safety Report 21232242 (Version 1)
Quarter: 2022Q3

REPORT INFORMATION
  Report Type: Spontaneous
  Country: US (occurrence: None)
  Receive Date: 20220818
  Receipt Date: 20220818
  Transmission Date: 20221027
  Serious: No
  Sender: FDA-Public Use
  Company Number: None

PATIENT
  Age: 66 Year
  Sex: Male
  Weight: 101.25 kg

DRUGS (4)
  1. CHLORHEXIDINE GLUCONATE 0.12% ORAL RINSE [Suspect]
     Active Substance: CHLORHEXIDINE GLUCONATE
     Indication: Tooth infection
     Dosage: OTHER QUANTITY : 1 CAPFUL;?FREQUENCY : TWICE A DAY;?
     Route: 048
  2. HYDROCHLOROTHIAZIDE [Concomitant]
     Active Substance: HYDROCHLOROTHIAZIDE
  3. METOPROLOL SUCCINATE [Concomitant]
     Active Substance: METOPROLOL SUCCINATE
  4. ENALAPRIL [Concomitant]

REACTIONS (6)
  - Palpitations [None]
  - Palpitations [None]
  - Heart rate increased [None]
  - Hyperhidrosis [None]
  - Wheezing [None]
  - Hypersensitivity [None]

NARRATIVE: CASE EVENT DATE: 20220811
